FAERS Safety Report 8657557 (Version 2)
Quarter: 2014Q3

REPORT INFORMATION
  Report Type: Spontaneous
  Country: DK (occurrence: DK)
  Receive Date: 20120710
  Receipt Date: 20140702
  Transmission Date: 20150326
  Serious: Yes (Death, Hospitalization)
  Sender: FDA-Public Use
  Company Number: PHHY2012DK058366

PATIENT
  Age: 67 Year
  Sex: Female
  Weight: 94 kg

DRUGS (4)
  1. GLUCOSAMINE [Concomitant]
     Active Substance: GLUCOSAMINE
     Route: 048
  2. CIPRALEX [Concomitant]
     Active Substance: ESCITALOPRAM OXALATE
     Indication: DEPRESSION
     Dosage: UNK UKN, UNK
     Route: 048
     Dates: end: 20111231
  3. LEPONEX [Suspect]
     Active Substance: CLOZAPINE
     Indication: SCHIZOPHRENIA
     Dosage: 187.5 MG, (12.5 MG IN THE MORNING AND 175 MG IN THE EVENING)
     Route: 048
     Dates: end: 20111223
  4. PROPANOLOL [Concomitant]
     Active Substance: PROPRANOLOL HYDROCHLORIDE
     Dosage: 20 MG, BID
     Route: 048

REACTIONS (3)
  - Leukopenia [Unknown]
  - Schizophrenia [Unknown]
  - Death [Fatal]
